FAERS Safety Report 24727350 (Version 4)
Quarter: 2025Q3

REPORT INFORMATION
  Report Type: Spontaneous
  Country: US (occurrence: US)
  Receive Date: 20241212
  Receipt Date: 20250806
  Transmission Date: 20251021
  Serious: Yes (Other)
  Sender: ABBVIE
  Company Number: US-ABBVIE-6038391

PATIENT
  Age: 47 Year
  Sex: Female
  Weight: 101 kg

DRUGS (30)
  1. UPADACITINIB [Suspect]
     Active Substance: UPADACITINIB
     Indication: Sjogren^s syndrome
     Route: 048
     Dates: start: 2021, end: 20241029
  2. ALBUTEROL [Concomitant]
     Active Substance: ALBUTEROL
     Indication: Product used for unknown indication
     Dosage: ACT INHALER, INHALE 2 PUFFS BY MOUTH FOR 10 DAYS
  3. ALPRAZOLAM [Concomitant]
     Active Substance: ALPRAZOLAM
     Indication: Product used for unknown indication
     Route: 048
  4. OMEPRAZOLE [Concomitant]
     Active Substance: OMEPRAZOLE
     Indication: Product used for unknown indication
     Dosage: DELAY RELEASE TABLET
     Route: 048
  5. OZEMPIC [Concomitant]
     Active Substance: SEMAGLUTIDE
     Indication: Product used for unknown indication
     Route: 058
  6. OZEMPIC [Concomitant]
     Active Substance: SEMAGLUTIDE
     Indication: Product used for unknown indication
     Route: 058
  7. POTASSIUM CHLORIDE [Concomitant]
     Active Substance: POTASSIUM CHLORIDE
     Indication: Product used for unknown indication
     Route: 048
  8. FINASTERIDE [Concomitant]
     Active Substance: FINASTERIDE
     Indication: Product used for unknown indication
  9. FOLIC ACID [Concomitant]
     Active Substance: FOLIC ACID
     Indication: Product used for unknown indication
     Route: 048
  10. GABAPENTIN [Concomitant]
     Active Substance: GABAPENTIN
     Indication: Product used for unknown indication
     Route: 048
  11. HYDROCHLOROTHIAZIDE\IRBESARTAN [Concomitant]
     Active Substance: HYDROCHLOROTHIAZIDE\IRBESARTAN
     Indication: Product used for unknown indication
     Route: 048
  12. LOTEPREDNOL [Concomitant]
     Active Substance: LOTEPREDNOL
     Indication: Product used for unknown indication
  13. MOBIC [Suspect]
     Active Substance: MELOXICAM
     Indication: Product used for unknown indication
     Route: 048
  14. ATENOLOL [Concomitant]
     Active Substance: ATENOLOL
     Indication: Product used for unknown indication
     Route: 048
  15. ATORVASTATIN [Suspect]
     Active Substance: ATORVASTATIN
     Indication: Product used for unknown indication
     Route: 048
  16. CYCLOBENZAPRINE [Concomitant]
     Active Substance: CYCLOBENZAPRINE
     Indication: Product used for unknown indication
     Route: 048
  17. ESCITALOPRAM [Concomitant]
     Active Substance: ESCITALOPRAM OXALATE
     Indication: Product used for unknown indication
     Route: 048
  18. ASPIRIN [Concomitant]
     Active Substance: ASPIRIN
     Indication: Product used for unknown indication
  19. MINOXIDIL [Concomitant]
     Active Substance: MINOXIDIL
     Indication: Product used for unknown indication
  20. NALTREXONE [Suspect]
     Active Substance: NALTREXONE
     Indication: Product used for unknown indication
     Route: 065
  21. SULFASALAZINE [Concomitant]
     Active Substance: SULFASALAZINE
     Indication: Product used for unknown indication
     Dosage: TAKE 2 TABLETS 1,000 MG BY MOUTH IN THE MORNING
     Route: 048
  22. XIIDRA [Concomitant]
     Active Substance: LIFITEGRAST
     Indication: Product used for unknown indication
     Dosage: INSTILL 1 DROP INTO EACH EYE
  23. AZULFIDINE [Suspect]
     Active Substance: SULFASALAZINE
     Indication: Product used for unknown indication
     Route: 048
  24. AMOXICILLIN AND CLAVULANATE POTASSIUM [Concomitant]
     Active Substance: AMOXICILLIN\CLAVULANATE POTASSIUM
     Indication: Product used for unknown indication
     Dosage: 875-125 MG, TAKE 1 TABLET EVERY 12 HOURS DAILY
     Route: 048
  25. FLUOCINOLONE [Concomitant]
     Active Substance: FLUOCINOLONE
     Indication: Product used for unknown indication
     Dosage: ACETONIDE 0.025 %, APPLY TO THE AFFECTED AREA TWICE DAILY AS NEEDED
     Route: 061
  26. FLUTICASONE PROPIONATE [Concomitant]
     Active Substance: FLUTICASONE PROPIONATE
     Indication: Product used for unknown indication
     Dosage: 50 MCG/ACT, USE 2 SPRAYS IN EACH NOSTRIL ONCE DAILY
  27. LIDOCAINE [Concomitant]
     Active Substance: LIDOCAINE
     Indication: Product used for unknown indication
  28. PREDNISONE [Concomitant]
     Active Substance: PREDNISONE
     Indication: Product used for unknown indication
     Route: 048
  29. VALACYCLOVIR [Concomitant]
     Active Substance: VALACYCLOVIR HYDROCHLORIDE
     Indication: Product used for unknown indication
     Route: 048
  30. ZOLPIDEM TARTRATE [Concomitant]
     Active Substance: ZOLPIDEM TARTRATE
     Indication: Insomnia
     Route: 048

REACTIONS (88)
  - Retinal detachment [Not Recovered/Not Resolved]
  - Retinal tear [Not Recovered/Not Resolved]
  - Gastrointestinal disorder [Not Recovered/Not Resolved]
  - Sensory loss [Not Recovered/Not Resolved]
  - Jaundice [Not Recovered/Not Resolved]
  - Uterine haemorrhage [Not Recovered/Not Resolved]
  - Blood creatine phosphokinase increased [Not Recovered/Not Resolved]
  - Full blood count abnormal [Not Recovered/Not Resolved]
  - Insomnia [Not Recovered/Not Resolved]
  - Alopecia [Not Recovered/Not Resolved]
  - Liver disorder [Not Recovered/Not Resolved]
  - Gait disturbance [Not Recovered/Not Resolved]
  - Hypoaesthesia [Unknown]
  - Paraesthesia [Recovering/Resolving]
  - Ear infection [Recovered/Resolved]
  - Fungal infection [Not Recovered/Not Resolved]
  - Pneumonia [Not Recovered/Not Resolved]
  - COVID-19 [Not Recovered/Not Resolved]
  - Deafness [Not Recovered/Not Resolved]
  - Neuropathy peripheral [Unknown]
  - Drug ineffective [Unknown]
  - Osteoarthritis [Unknown]
  - Drug abuse [Unknown]
  - Dysstasia [Not Recovered/Not Resolved]
  - Pedal pulse decreased [Unknown]
  - Excessive cerumen production [Unknown]
  - Fibromuscular dysplasia [Unknown]
  - Hypertension [Unknown]
  - Hyperlipidaemia [Unknown]
  - Hypokalaemia [Unknown]
  - Lumbar radiculopathy [Unknown]
  - Obesity [Unknown]
  - Palpitations [Unknown]
  - Snoring [Unknown]
  - Tinnitus [Unknown]
  - Lymphocytosis [Unknown]
  - Arthralgia [Unknown]
  - Sinusitis [Recovered/Resolved]
  - Tympanic membrane perforation [Unknown]
  - Hepatic steatosis [Recovered/Resolved]
  - Pain [Recovered/Resolved]
  - Back pain [Recovered/Resolved]
  - Middle ear effusion [Recovered/Resolved]
  - Metamorphopsia [Unknown]
  - Blindness unilateral [Unknown]
  - Diplopia [Unknown]
  - Eye discharge [Unknown]
  - Ocular hyperaemia [Unknown]
  - Foreign body sensation in eyes [Unknown]
  - Eye pruritus [Unknown]
  - Eye irritation [Unknown]
  - Eye pain [Unknown]
  - Photopsia [Unknown]
  - Auditory disorder [Unknown]
  - Urine analysis abnormal [Unknown]
  - Foreign body in ear [Unknown]
  - Vitamin D increased [Unknown]
  - Peripheral swelling [Unknown]
  - Left ventricular hypertrophy [Unknown]
  - Nasal congestion [Unknown]
  - Neck pain [Unknown]
  - Ear pain [Unknown]
  - Glucose tolerance impaired [Unknown]
  - Osteoarthritis [Unknown]
  - Ear pain [Unknown]
  - Rotator cuff syndrome [Unknown]
  - Deafness neurosensory [Unknown]
  - Sjogren^s syndrome [Unknown]
  - Lumbar spinal stenosis [Unknown]
  - Vitamin B12 deficiency [Unknown]
  - Gastrooesophageal reflux disease [Unknown]
  - Agatston score [Unknown]
  - Carotid artery stenosis [Unknown]
  - Carotid bruit [Unknown]
  - Spinal osteoarthritis [Unknown]
  - Diabetic autonomic neuropathy [Unknown]
  - Diabetic neuropathy [Unknown]
  - Dysphagia [Unknown]
  - Dyspnoea [Unknown]
  - Eczema [Unknown]
  - Mean cell volume increased [Unknown]
  - Folate deficiency [Unknown]
  - Impaired gastric emptying [Not Recovered/Not Resolved]
  - Cervical spinal stenosis [Unknown]
  - Type 2 diabetes mellitus [Unknown]
  - Vitreous floaters [Unknown]
  - Face injury [Unknown]
  - Retinal tear [Unknown]

NARRATIVE: CASE EVENT DATE: 20210101
